FAERS Safety Report 6048772-7 (Version None)
Quarter: 2009Q1

REPORT INFORMATION
  Report Type: 
  Country: None (occurrence: None)
  Receive Date: 20090123
  Receipt Date: 20090114
  Transmission Date: 20090719
  Serious: Yes (Hospitalization)
  Sender: FDA-Public Use
  Company Number: JP-NOVOPROD-283206

PATIENT
  Age: 14 Year
  Sex: Female
  Weight: 32 kg

DRUGS (1)
  1. NORDITROPIN S CHU [Suspect]
     Dosage: 1 MG, QD
     Route: 058
     Dates: start: 20040501

REACTIONS (1)
  - PNEUMOTHORAX [None]
